FAERS Safety Report 10098407 (Version 1)
Quarter: 2014Q2

REPORT INFORMATION
  Report Type: Report from Study
  Country: ES (occurrence: ES)
  Receive Date: 20140423
  Receipt Date: 20140423
  Transmission Date: 20141212
  Serious: Yes (Hospitalization)
  Sender: FDA-Public Use
  Company Number: PHHY2014ES046576

PATIENT
  Age: 59 Year
  Sex: Male

DRUGS (6)
  1. NILOTINIB [Suspect]
     Indication: CHRONIC MYELOID LEUKAEMIA
     Dosage: 600 MG, QD
     Route: 048
     Dates: start: 20120327, end: 20140321
  2. SINTROM [Concomitant]
  3. VALSARTAN [Concomitant]
  4. DIGOXINA [Concomitant]
  5. ZANTAC [Concomitant]
  6. ADALAT [Concomitant]

REACTIONS (3)
  - Cerebrovascular accident [Recovered/Resolved]
  - Aphasia [Unknown]
  - Cerebral artery occlusion [Unknown]
